FAERS Safety Report 7373787-6 (Version None)
Quarter: 2011Q1

REPORT INFORMATION
  Report Type: 
  Country: None (occurrence: None)
  Receive Date: 20110315
  Receipt Date: 20110302
  Transmission Date: 20110831
  Serious: No
  Sender: FDA-Public Use
  Company Number: 2011SP006552

PATIENT
  Age: 22 Year
  Sex: Female
  Weight: 49.9 kg

DRUGS (1)
  1. NUVARING [Suspect]
     Indication: CONTRACEPTION
     Dosage: QM;VAG
     Route: 067
     Dates: start: 20100630, end: 20101126

REACTIONS (4)
  - PREGNANCY WITH CONTRACEPTIVE DEVICE [None]
  - ABORTION SPONTANEOUS COMPLETE [None]
  - DEPRESSED MOOD [None]
  - DRUG EXPOSURE DURING PREGNANCY [None]
